FAERS Safety Report 11746794 (Version 3)
Quarter: 2016Q1

REPORT INFORMATION
  Report Type: Spontaneous
  Country: US (occurrence: US)
  Receive Date: 20151117
  Receipt Date: 20160106
  Transmission Date: 20160525
  Serious: No
  Sender: FDA-Public Use
  Company Number: US-ACTELION PHARMACEUTICALS US, INC.-A-US2014-97188

PATIENT
  Age: 72 Year
  Sex: Female

DRUGS (6)
  1. SILDENAFIL. [Concomitant]
     Active Substance: SILDENAFIL
  2. TRACLEER [Suspect]
     Active Substance: BOSENTAN
     Indication: PULMONARY ARTERIAL HYPERTENSION
     Dosage: UNK
     Route: 048
     Dates: start: 20131120
  3. TYVASO [Concomitant]
     Active Substance: TREPROSTINIL
  4. TREPROSTINIL DIOLAMIN [Concomitant]
     Active Substance: TREPROSTINIL DIOLAMINE
  5. COUMADIN [Concomitant]
     Active Substance: WARFARIN SODIUM
  6. CARTIA XT [Concomitant]
     Active Substance: DILTIAZEM HYDROCHLORIDE

REACTIONS (12)
  - Oropharyngeal pain [Unknown]
  - Bronchitis [Recovered/Resolved]
  - Condition aggravated [Recovering/Resolving]
  - Oxygen saturation decreased [Unknown]
  - Dysphonia [Unknown]
  - Dizziness [Unknown]
  - Respiratory tract infection [Unknown]
  - Dyspnoea exertional [Recovering/Resolving]
  - Drug dose omission [Unknown]
  - Throat irritation [Unknown]
  - Unevaluable event [Unknown]
  - Fluid retention [Unknown]
